FAERS Safety Report 13295242 (Version 1)
Quarter: 2017Q1

REPORT INFORMATION
  Report Type: Spontaneous
  Country: US (occurrence: US)
  Receive Date: 20170303
  Receipt Date: 20170303
  Transmission Date: 20170428
  Serious: No
  Sender: FDA-Public Use
  Company Number: US-JNJFOC-20170207444

PATIENT
  Age: 3 Decade
  Sex: Female
  Weight: 60.33 kg

DRUGS (1)
  1. SYLVANT [Suspect]
     Active Substance: SILTUXIMAB
     Indication: CASTLEMAN^S DISEASE
     Route: 042
     Dates: start: 20170111

REACTIONS (2)
  - Epistaxis [Unknown]
  - Contusion [Unknown]

NARRATIVE: CASE EVENT DATE: 20170207
